FAERS Safety Report 7685210-2 (Version None)
Quarter: 2011Q3

REPORT INFORMATION
  Report Type: 
  Country: None (occurrence: None)
  Receive Date: 20110816
  Receipt Date: 20110811
  Transmission Date: 20111222
  Serious: Yes (Other)
  Sender: FDA-Public Use
  Company Number: US-PFIZER INC-2011185248

PATIENT
  Sex: Female
  Weight: 63.492 kg

DRUGS (2)
  1. GABAPENTIN [Suspect]
     Indication: ANXIETY
     Dosage: 300 MG, 2X/DAY
     Route: 048
     Dates: start: 20090701
  2. LASIX [Concomitant]
     Dosage: 40 MG, 2X/DAY

REACTIONS (1)
  - DRUG SCREEN POSITIVE [None]
